FAERS Safety Report 7807822-5 (Version None)
Quarter: 2011Q4

REPORT INFORMATION
  Report Type: 
  Country: None (occurrence: None)
  Receive Date: 20111011
  Receipt Date: 20111004
  Transmission Date: 20120403
  Serious: Yes (Death)
  Sender: FDA-Public Use
  Company Number: JP-BRISTOL-MYERS SQUIBB COMPANY-14807291

PATIENT
  Age: 60 Year
  Sex: Male

DRUGS (6)
  1. LAMIVUDINE [Suspect]
  2. RETROVIR [Suspect]
  3. BERBERINE [Concomitant]
     Indication: DIARRHOEA
     Dosage: 1 DF = 1 UNITS NOS,TABS
     Route: 048
     Dates: end: 20100101
  4. REYATAZ [Suspect]
     Indication: HIV INFECTION
     Route: 048
     Dates: start: 20040311, end: 20100101
  5. LOPERAMIDE HCL [Concomitant]
     Indication: DIARRHOEA
     Route: 048
     Dates: end: 20100101
  6. EPZICOM [Suspect]
     Indication: HIV INFECTION
     Dosage: 1 D.F= 1 TAB
     Route: 048
     Dates: start: 20070413, end: 20100101

REACTIONS (6)
  - SPINAL COMPRESSION FRACTURE [None]
  - HYPERLIPIDAEMIA [None]
  - GLUCOSE URINE PRESENT [None]
  - METASTASES TO BONE [None]
  - BLOOD GLUCOSE INCREASED [None]
  - HEPATIC FUNCTION ABNORMAL [None]
